FAERS Safety Report 21765516 (Version 1)
Quarter: 2022Q4

REPORT INFORMATION
  Report Type: Spontaneous
  Country: US (occurrence: US)
  Receive Date: 20221222
  Receipt Date: 20221222
  Transmission Date: 20230113
  Serious: Yes (Hospitalization)
  Sender: FDA-Public Use
  Company Number: US-MYLANLABS-2022M1026658

PATIENT
  Age: 15 Year
  Sex: Female

DRUGS (2)
  1. ACETAMINOPHEN [Suspect]
     Active Substance: ACETAMINOPHEN
     Indication: Product used for unknown indication
     Dosage: UNK
     Route: 048
  2. FOMEPIZOLE [Suspect]
     Active Substance: FOMEPIZOLE
     Indication: Intentional overdose
     Dosage: 150 MILLIGRAM/KILOGRAM, OVER 30 MIN
     Route: 065

REACTIONS (3)
  - Intentional overdose [Recovered/Resolved]
  - Drug-induced liver injury [Recovered/Resolved]
  - Off label use [Unknown]
